FAERS Safety Report 9114566 (Version 1)
Quarter: 2013Q1

REPORT INFORMATION
  Report Type: Spontaneous
  Country: US (occurrence: None)
  Receive Date: 20130220
  Receipt Date: 20130220
  Transmission Date: 20140127
  Serious: No
  Sender: FDA-Public Use
  Company Number: None

PATIENT
  Age: 25 Year
  Sex: Male

DRUGS (1)
  1. OLANZEPINE  10MG [Suspect]
     Dosage: 10MG   DAILY   PO?GREATER THAN 2 MONTHS
     Route: 048

REACTIONS (4)
  - Blood triglycerides increased [None]
  - Blood cholesterol increased [None]
  - Low density lipoprotein increased [None]
  - Blood creatine phosphokinase increased [None]
